FAERS Safety Report 4962139-1 (Version None)
Quarter: 2006Q2

REPORT INFORMATION
  Report Type: 
  Country: None (occurrence: None)
  Receive Date: 20060404
  Receipt Date: 20060323
  Transmission Date: 20061013
  Serious: Yes (Other)
  Sender: FDA-Public Use
  Company Number: US-BRISTOL-MYERS SQUIBB COMPANY-13326319

PATIENT

DRUGS (14)
  1. IFOSFAMIDE [Suspect]
     Indication: CERVIX CARCINOMA RECURRENT
     Route: 042
  2. IFOSFAMIDE [Suspect]
     Indication: CERVIX CARCINOMA STAGE IV
     Route: 042
  3. IFOSFAMIDE [Suspect]
     Route: 042
  4. IFOSFAMIDE [Suspect]
     Route: 042
  5. PACLITAXEL [Suspect]
     Indication: CERVIX CARCINOMA RECURRENT
     Route: 042
  6. PACLITAXEL [Suspect]
     Indication: CERVIX CARCINOMA STAGE IV
     Route: 042
  7. CARBOPLATIN [Suspect]
     Indication: CERVIX CARCINOMA RECURRENT
  8. CARBOPLATIN [Suspect]
     Indication: CERVIX CARCINOMA STAGE IV
  9. MESNA [Concomitant]
     Route: 040
  10. ONDANSETRON [Concomitant]
     Indication: PROPHYLAXIS OF NAUSEA AND VOMITING
     Route: 042
  11. GRANISETRON [Concomitant]
     Indication: PROPHYLAXIS OF NAUSEA AND VOMITING
     Route: 042
  12. GRANISETRON [Concomitant]
     Route: 048
  13. DEXAMETHASONE TAB [Concomitant]
     Indication: PREMEDICATION
     Route: 048
  14. DIPHENHYDRAMINE [Concomitant]
     Indication: PREMEDICATION
     Route: 042

REACTIONS (6)
  - ANAEMIA [None]
  - COUGH [None]
  - DYSPNOEA [None]
  - FATIGUE [None]
  - LEUKOPENIA [None]
  - THROMBOCYTOPENIA [None]
